FAERS Safety Report 23163246 (Version 1)
Quarter: 2023Q4

REPORT INFORMATION
  Report Type: Report from Study
  Country: DE (occurrence: DE)
  Receive Date: 20231109
  Receipt Date: 20231109
  Transmission Date: 20240110
  Serious: Yes (Hospitalization, Other)
  Sender: FDA-Public Use
  Company Number: DE-ROCHE-2253150

PATIENT
  Age: 39 Year
  Sex: Female

DRUGS (23)
  1. DIAZEPAM [Suspect]
     Active Substance: DIAZEPAM
     Indication: Product used for unknown indication
     Route: 065
  2. OCREVUS [Suspect]
     Active Substance: OCRELIZUMAB
     Indication: Relapsing-remitting multiple sclerosis
     Route: 042
     Dates: start: 20180621
  3. OCREVUS [Suspect]
     Active Substance: OCRELIZUMAB
     Route: 042
     Dates: start: 20181213
  4. OCREVUS [Suspect]
     Active Substance: OCRELIZUMAB
     Dosage: SUBSEQUENT DOSE ADMINISTERED: 11/DEC/2019
     Route: 042
     Dates: start: 20190613
  5. OCREVUS [Suspect]
     Active Substance: OCRELIZUMAB
     Dosage: 4TH MAINTENANCE DOSE
     Route: 042
     Dates: start: 20200608
  6. OCREVUS [Suspect]
     Active Substance: OCRELIZUMAB
     Route: 042
     Dates: start: 20210908
  7. TAVOR (LORAZEPAM) [Suspect]
     Active Substance: LORAZEPAM
     Indication: Product used for unknown indication
     Route: 065
  8. TAVOR (LORAZEPAM) [Suspect]
     Active Substance: LORAZEPAM
     Indication: Depression
  9. BUPROPION HYDROCHLORIDE [Concomitant]
     Active Substance: BUPROPION HYDROCHLORIDE
     Indication: Product used for unknown indication
  10. BACLOFEN [Concomitant]
     Active Substance: BACLOFEN
     Indication: Multiple sclerosis
  11. BACLOFEN [Concomitant]
     Active Substance: BACLOFEN
     Dosage: 10 MG AND 5 MG 4XDAILY, 60 MG DAILY TIME INTERVAL: 0.25 DAYS;
  12. BACLOFEN [Concomitant]
     Active Substance: BACLOFEN
     Dates: start: 2020
  13. BACLOFEN [Concomitant]
     Active Substance: BACLOFEN
     Dosage: 3 TIMES 1.5 TABLETS
  14. BACLOFEN [Concomitant]
     Active Substance: BACLOFEN
     Dosage: 10 MG AND 5 MG 4XDAILY, 65 MG DAILY TIME INTERVAL: 0.25 DAYS;
  15. VALDOXAN [Concomitant]
     Active Substance: AGOMELATINE
     Indication: Depression
     Dosage: AT NIGHT
  16. VALDOXAN [Concomitant]
     Active Substance: AGOMELATINE
     Dosage: ONCE IN THE EVENING
  17. FLUTICASONE FUROATE\VILANTEROL TRIFENATATE [Concomitant]
     Active Substance: FLUTICASONE FUROATE\VILANTEROL TRIFENATATE
     Indication: Product used for unknown indication
     Dosage: 92UG/22UG
     Route: 055
  18. NABIXIMOLS [Concomitant]
     Active Substance: NABIXIMOLS
     Indication: Multiple sclerosis
     Route: 048
  19. NABIXIMOLS [Concomitant]
     Active Substance: NABIXIMOLS
     Dosage: 2-4 PUMPS PER DAY
     Route: 048
  20. NABIXIMOLS [Concomitant]
     Active Substance: NABIXIMOLS
     Dosage: 6 PUMPS PER DAY
  21. MOVICOL [MACROGOL 3350;POTASSIUM CHLORIDE;SODIUM BICARBONATE;SODIUM... [Concomitant]
     Indication: Product used for unknown indication
     Route: 048
  22. MOVICOL [MACROGOL 3350;POTASSIUM CHLORIDE;SODIUM BICARBONATE;SODIUM... [Concomitant]
  23. COMIRNATY (TOZINAMERAN) [Concomitant]
     Active Substance: TOZINAMERAN
     Indication: COVID-19 immunisation

REACTIONS (19)
  - Fall [Unknown]
  - Comminuted fracture [Not Recovered/Not Resolved]
  - Wrist fracture [Not Recovered/Not Resolved]
  - Depression [Recovered/Resolved]
  - Suicide attempt [Recovered/Resolved]
  - Multiple sclerosis [Recovering/Resolving]
  - Electrocardiogram QT interval abnormal [Recovered/Resolved]
  - Peripheral swelling [Recovered/Resolved]
  - Skin discolouration [Not Recovered/Not Resolved]
  - Lymphoedema [Unknown]
  - Fatigue [Recovered/Resolved]
  - Lymphatic disorder [Unknown]
  - Muscle spasms [Recovering/Resolving]
  - Disturbance in attention [Recovered/Resolved]
  - Magnesium deficiency [Recovered/Resolved]
  - Gastritis [Recovered/Resolved]
  - Overdose [Unknown]
  - Decreased appetite [Recovered/Resolved]
  - Weight decreased [Recovering/Resolving]

NARRATIVE: CASE EVENT DATE: 20180621
